FAERS Safety Report 11724240 (Version 2)
Quarter: 2015Q4

REPORT INFORMATION
  Report Type: Spontaneous
  Country: US (occurrence: US)
  Receive Date: 20151111
  Receipt Date: 20151116
  Transmission Date: 20160304
  Serious: No
  Sender: FDA-Public Use
  Company Number: US-TAKEDA-2015TUS015691

PATIENT
  Age: 56 Year
  Sex: Female
  Weight: 77.98 kg

DRUGS (7)
  1. DILTIAZEM [Concomitant]
     Active Substance: DILTIAZEM
     Indication: HYPERTENSION
     Dosage: UNK
     Route: 048
  2. DEXILANT [Suspect]
     Active Substance: DEXLANSOPRAZOLE
     Indication: ULCER
  3. BENICAR [Concomitant]
     Active Substance: OLMESARTAN MEDOXOMIL
     Indication: HYPERTENSION
     Dosage: UNK
     Route: 048
  4. DEXILANT [Suspect]
     Active Substance: DEXLANSOPRAZOLE
     Indication: ABDOMINAL PAIN UPPER
     Dosage: 60 MG, BID
     Route: 048
     Dates: start: 20150701, end: 20150731
  5. ATIVAN [Concomitant]
     Active Substance: LORAZEPAM
     Indication: DIZZINESS
     Dosage: UNK
     Route: 048
  6. DEXILANT [Suspect]
     Active Substance: DEXLANSOPRAZOLE
     Indication: NAUSEA
     Dosage: 60 MG, QD
     Route: 048
     Dates: start: 20151103, end: 20151103
  7. IRON [Concomitant]
     Active Substance: IRON
     Indication: IRON DEFICIENCY ANAEMIA
     Dosage: UNK
     Route: 042

REACTIONS (11)
  - Abasia [Recovering/Resolving]
  - Tachycardia [Recovering/Resolving]
  - Dyspnoea [Recovering/Resolving]
  - Crying [Recovering/Resolving]
  - Blood pressure increased [Recovering/Resolving]
  - Depression [Recovering/Resolving]
  - Dizziness [Recovering/Resolving]
  - Facial pain [Recovering/Resolving]
  - Throat tightness [Recovering/Resolving]
  - Product use issue [Recovered/Resolved]
  - Musculoskeletal pain [Recovering/Resolving]

NARRATIVE: CASE EVENT DATE: 2015
